FAERS Safety Report 7699911-3 (Version None)
Quarter: 2011Q3

REPORT INFORMATION
  Report Type: 
  Country: None (occurrence: None)
  Receive Date: 20110822
  Receipt Date: 20110808
  Transmission Date: 20111222
  Serious: Yes (Other)
  Sender: FDA-Public Use
  Company Number: DE-JNJFOC-20110706006

PATIENT
  Sex: Male
  Weight: 104 kg

DRUGS (9)
  1. TAPENTADOL [Suspect]
     Dosage: 100 MG IN THE MORNING AND 50 MG IN THE EVENING
     Route: 048
     Dates: start: 20110614, end: 20110614
  2. TORSEMIDE [Concomitant]
     Route: 065
  3. FORMOLICH [Concomitant]
     Route: 065
  4. TAPENTADOL [Suspect]
     Indication: PRODUCT USED FOR UNKNOWN INDICATION
     Route: 048
     Dates: start: 20110504
  5. NEBIVOLOL HCL [Concomitant]
     Route: 065
  6. MARCUMAR [Concomitant]
     Indication: ATRIAL FIBRILLATION
     Route: 065
  7. TEMGESIC [Concomitant]
     Route: 065
  8. MARCUMAR [Concomitant]
     Indication: ARRHYTHMIA
     Route: 065
  9. BERODUAL [Concomitant]
     Route: 065

REACTIONS (2)
  - URINARY RETENTION [None]
  - URTICARIA [None]
